FAERS Safety Report 4737593-0 (Version None)
Quarter: 2005Q3

REPORT INFORMATION
  Report Type: 
  Country: None (occurrence: None)
  Receive Date: 20050809
  Receipt Date: 20050518
  Transmission Date: 20060218
  Serious: No
  Sender: FDA-Public Use
  Company Number: US-GLAXOSMITHKLINE-A0559083A

PATIENT
  Age: 46 Year
  Sex: Female

DRUGS (2)
  1. COMMIT [Suspect]
     Dates: start: 20050510
  2. WELLBUTRIN [Concomitant]

REACTIONS (3)
  - CHEST PAIN [None]
  - FEELING ABNORMAL [None]
  - NERVOUSNESS [None]
